FAERS Safety Report 6284145-X (Version None)
Quarter: 2009Q3

REPORT INFORMATION
  Report Type: 
  Country: None (occurrence: None)
  Receive Date: 20090722
  Receipt Date: 20090707
  Transmission Date: 20100115
  Serious: Yes (Death, Life-Threatening, Hospitalization)
  Sender: FDA-Public Use
  Company Number: ADE2009-0726

PATIENT
  Age: 29 Year
  Sex: Male

DRUGS (2)
  1. METFORMIN 850MG TABLETS [Suspect]
     Indication: INTENTIONAL OVERDOSE
     Dosage: 64-85 GRAMS - X 1  PO
     Route: 048
  2. ETHANOL [Suspect]

REACTIONS (37)
  - ABDOMINAL PAIN [None]
  - ABDOMINAL TENDERNESS [None]
  - AGGRESSION [None]
  - AGITATION [None]
  - ASPIRATION [None]
  - BLOOD CREATINE PHOSPHOKINASE MB INCREASED [None]
  - BLOOD FIBRINOGEN DECREASED [None]
  - BLOOD LACTIC ACID INCREASED [None]
  - BLOOD PRESSURE DECREASED [None]
  - BODY TEMPERATURE DECREASED [None]
  - COAGULOPATHY [None]
  - COMPLETED SUICIDE [None]
  - CONFUSIONAL STATE [None]
  - DIARRHOEA [None]
  - ELECTROMECHANICAL DISSOCIATION [None]
  - FAECAL INCONTINENCE [None]
  - FIBRIN D DIMER INCREASED [None]
  - HAEMATOCRIT INCREASED [None]
  - HAEMODIALYSIS [None]
  - HAEMOGLOBIN URINE PRESENT [None]
  - HEART RATE DECREASED [None]
  - HYPERGLYCAEMIA [None]
  - INTENTIONAL OVERDOSE [None]
  - INTERNATIONAL NORMALISED RATIO INCREASED [None]
  - LEFT VENTRICULAR DYSFUNCTION [None]
  - METABOLIC ACIDOSIS [None]
  - MUCOSAL DRYNESS [None]
  - PAIN IN EXTREMITY [None]
  - PLATELET COUNT INCREASED [None]
  - RESPIRATORY RATE INCREASED [None]
  - SELF-MEDICATION [None]
  - SINUS TACHYCARDIA [None]
  - THIRST [None]
  - TROPONIN INCREASED [None]
  - UNRESPONSIVE TO STIMULI [None]
  - VENTRICULAR TACHYCARDIA [None]
  - VOMITING [None]
